FAERS Safety Report 7009170 (Version 6)
Quarter: 2013Q4

REPORT INFORMATION
  Report Type: Report from Study
  Country: JP (occurrence: JP)
  Receive Date: 20090602
  Receipt Date: 20131016
  Transmission Date: 20140711
  Serious: Yes (Death, Life-Threatening, Hospitalization)
  Sender: FDA-Public Use
  Company Number: PHHY2009JP13580

PATIENT
  Age: 58 Year
  Sex: Male
  Weight: 72 kg

DRUGS (14)
  1. ICL670A [Suspect]
     Indication: MYELOFIBROSIS
     Dosage: 1375 MG, QD
     Route: 048
     Dates: start: 20080904, end: 20090205
  2. ICL670A [Suspect]
     Dosage: 1000 MG, QD
     Route: 048
     Dates: start: 20090206, end: 20090312
  3. PREDNISOLONE [Suspect]
     Indication: MYELOFIBROSIS
     Dosage: 10 MG, UNK
     Route: 048
     Dates: start: 20080904, end: 20090303
  4. PREDNISOLONE [Suspect]
     Dosage: 10 MG, DAILY
     Route: 048
     Dates: start: 20090304, end: 20090904
  5. MEROPENEM [Suspect]
     Indication: PROPHYLAXIS
     Dosage: 1 G, DAILY
     Route: 041
     Dates: start: 20090515, end: 20090525
  6. ZOSYN [Suspect]
     Indication: PROPHYLAXIS
     Dosage: 13.5 G, DAILY
     Route: 042
     Dates: start: 20090526, end: 20090605
  7. AMARYL [Concomitant]
     Indication: DIABETES MELLITUS
     Dosage: 0.5 MG, UNK
     Route: 048
     Dates: start: 20080904, end: 20090303
  8. AMARYL [Concomitant]
     Dosage: 1 MG,
     Route: 048
     Dates: start: 20090305, end: 20090904
  9. FOSAMAX [Concomitant]
     Indication: OSTEOPOROSIS
     Dosage: 35 MG, UNK
     Route: 048
     Dates: start: 20090304, end: 20090904
  10. MEDET [Concomitant]
     Indication: DIABETES MELLITUS
     Dosage: 500 MG, UNK
     Route: 048
     Dates: start: 20090304, end: 20090518
  11. CEPHADOL [Concomitant]
     Indication: DIZZINESS
     Dosage: 75 MG, UNK
     Route: 048
     Dates: start: 20090304, end: 20090904
  12. DESFERAL [Concomitant]
     Dosage: 1000 MG, UNK
     Route: 030
     Dates: start: 20071220, end: 20080821
  13. RED BLOOD CELLS, CONCENTRATED [Concomitant]
     Dosage: 2 U, QW
     Dates: start: 20080904, end: 20090304
  14. RED BLOOD CELLS, CONCENTRATED [Concomitant]
     Dosage: 2 U, QW
     Dates: start: 20090305, end: 20090904

REACTIONS (15)
  - Sepsis [Fatal]
  - Cellulitis [Recovering/Resolving]
  - Myelofibrosis [Not Recovered/Not Resolved]
  - Disease progression [Not Recovered/Not Resolved]
  - Abscess jaw [Recovering/Resolving]
  - Pyrexia [Unknown]
  - Stomatitis [Recovering/Resolving]
  - Aphthous stomatitis [Recovering/Resolving]
  - Subcutaneous abscess [Recovering/Resolving]
  - Malaise [Unknown]
  - Diarrhoea [Recovered/Resolved]
  - Renal impairment [Recovering/Resolving]
  - Blood creatinine increased [Recovering/Resolving]
  - Blood urea increased [Recovering/Resolving]
  - Alanine aminotransferase increased [Recovered/Resolved]
